FAERS Safety Report 6913546-9 (Version None)
Quarter: 2010Q3

REPORT INFORMATION
  Report Type: 
  Country: None (occurrence: None)
  Receive Date: 20100809
  Receipt Date: 20100726
  Transmission Date: 20110219
  Serious: Yes (Disabling)
  Sender: FDA-Public Use
  Company Number: US-ELI_LILLY_AND_COMPANY-US201007006702

PATIENT
  Sex: Female

DRUGS (7)
  1. CYMBALTA [Suspect]
     Indication: FIBROMYALGIA
     Dosage: 30 MG, 3/D
     Dates: end: 20100720
  2. CYMBALTA [Suspect]
     Dosage: 30 MG, 2/D
  3. CYMBALTA [Suspect]
     Dosage: 30 MG, DAILY (1/D)
  4. MIRAPEX [Concomitant]
  5. ATENOLOL [Concomitant]
  6. TRIAMTERENE [Concomitant]
  7. ADIPEX [Concomitant]

REACTIONS (8)
  - ASTHENIA [None]
  - DRUG WITHDRAWAL SYNDROME [None]
  - DRY MOUTH [None]
  - FIBROMYALGIA [None]
  - HYPOVENTILATION [None]
  - NAUSEA [None]
  - PALPITATIONS [None]
  - THIRST [None]
